FAERS Safety Report 6064535-0 (Version None)
Quarter: 2009Q1

REPORT INFORMATION
  Report Type: 
  Country: None (occurrence: None)
  Receive Date: 20090204
  Receipt Date: 20090130
  Transmission Date: 20090719
  Serious: Yes (Hospitalization)
  Sender: FDA-Public Use
  Company Number: A0766386A

PATIENT
  Age: 64 Year
  Sex: Female
  Weight: 63.2 kg

DRUGS (4)
  1. AVANDIA [Suspect]
     Route: 048
  2. INSULIN [Concomitant]
  3. VASOTEC [Concomitant]
  4. NORVASC [Concomitant]

REACTIONS (1)
  - CEREBROVASCULAR ACCIDENT [None]
